FAERS Safety Report 8616262-0 (Version None)
Quarter: 2012Q3

REPORT INFORMATION
  Report Type: 
  Country: None (occurrence: None)
  Receive Date: 20120823
  Receipt Date: 20120815
  Transmission Date: 20120928
  Serious: Yes (Hospitalization, Other)
  Sender: FDA-Public Use
  Company Number: PHHY2012IN067588

PATIENT
  Age: 20 Year
  Sex: Female

DRUGS (2)
  1. DICLOFENAC SODIUM [Suspect]
     Dosage: 50 MG, BID
  2. DICLOFENAC SODIUM [Suspect]
     Dosage: 50 MG, BID

REACTIONS (4)
  - SKIN ULCER [None]
  - OLIGOHYDRAMNIOS [None]
  - PLACENTAL INSUFFICIENCY [None]
  - MATERNAL EXPOSURE DURING PREGNANCY [None]
